FAERS Safety Report 7104873-3 (Version None)
Quarter: 2010Q4

REPORT INFORMATION
  Report Type: 
  Country: None (occurrence: None)
  Receive Date: 20101116
  Receipt Date: 20101105
  Transmission Date: 20110411
  Serious: Yes (Death, Life-Threatening, Hospitalization)
  Sender: FDA-Public Use
  Company Number: IT-BRISTOL-MYERS SQUIBB COMPANY-15385040

PATIENT
  Age: 68 Year
  Sex: Male

DRUGS (7)
  1. ERBITUX [Suspect]
     Indication: COLON CANCER
     Route: 042
     Dates: start: 20100709, end: 20100903
  2. IRINOTECAN HCL [Suspect]
     Indication: COLON CANCER
     Dates: start: 20100708, end: 20100909
  3. FLUOROURACIL [Suspect]
     Indication: COLON CANCER
     Dates: start: 20100708, end: 20100909
  4. LEVOFOLENE [Suspect]
     Indication: COLON CANCER
     Dates: start: 20100708, end: 20100909
  5. DECADRON [Concomitant]
     Dosage: 8 MG/2 ML
     Dates: start: 20100708, end: 20100909
  6. ZOFRAN [Concomitant]
     Dosage: 8 MG/4 ML
     Dates: start: 20100708, end: 20100909
  7. TRIMETON [Concomitant]
     Dosage: 10 MG/ML
     Dates: start: 20100708, end: 20100909

REACTIONS (3)
  - BLOOD LACTATE DEHYDROGENASE INCREASED [None]
  - LIVER DISORDER [None]
  - PNEUMONITIS [None]
